FAERS Safety Report 9263767 (Version 1)
Quarter: 2013Q2

REPORT INFORMATION
  Report Type: Spontaneous
  Country: US (occurrence: None)
  Receive Date: 20130429
  Receipt Date: 20130429
  Transmission Date: 20140414
  Serious: Yes (Congenital Anomaly)
  Sender: FDA-Public Use
  Company Number: None

PATIENT
  Age: 22 Year
  Sex: Female
  Weight: 70 kg

DRUGS (2)
  1. ENOXAPARIN [Suspect]
     Indication: PULMONARY EMBOLISM
     Route: 058
     Dates: start: 20121111, end: 20130419
  2. FERROUS SULFATE [Suspect]
     Indication: ANAEMIA
     Route: 048
     Dates: start: 20121111, end: 20130419

REACTIONS (1)
  - Maternal exposure during pregnancy [None]
